FAERS Safety Report 14920542 (Version 1)
Quarter: 2018Q2

REPORT INFORMATION
  Report Type: Report from Study
  Country: LT (occurrence: LT)
  Receive Date: 20180521
  Receipt Date: 20180521
  Transmission Date: 20180711
  Serious: Yes (Other)
  Sender: FDA-Public Use
  Company Number: LT-SHIRE-LT201737951

PATIENT

DRUGS (1)
  1. HUMAN COAGULATION FACTOR VIII (RECOMBINANT) UNSPECIFIED [Suspect]
     Active Substance: ANTIHEMOPHILIC FACTOR, HUMAN RECOMBINANT
     Indication: PRODUCT USED FOR UNKNOWN INDICATION
     Dosage: 3000 IU, EVERY 12 HOURS
     Route: 065

REACTIONS (3)
  - Bone pain [Unknown]
  - Gingival bleeding [Unknown]
  - Musculoskeletal pain [Unknown]

NARRATIVE: CASE EVENT DATE: 20160701
